FAERS Safety Report 19261604 (Version 1)
Quarter: 2021Q2

REPORT INFORMATION
  Report Type: Spontaneous
  Country: US (occurrence: US)
  Receive Date: 20210515
  Receipt Date: 20210515
  Transmission Date: 20210717
  Serious: No
  Sender: FDA-Public Use
  Company Number: US-SA-2020SA260974

PATIENT
  Sex: Male

DRUGS (6)
  1. DUPIXENT [Suspect]
     Active Substance: DUPILUMAB
     Indication: ESSENTIAL HYPERTENSION
  2. DUPIXENT [Suspect]
     Active Substance: DUPILUMAB
     Indication: ASTHMA
  3. DUPIXENT [Suspect]
     Active Substance: DUPILUMAB
     Indication: TYPE IIA HYPERLIPIDAEMIA
  4. DUPIXENT [Suspect]
     Active Substance: DUPILUMAB
     Indication: DERMATITIS ATOPIC
  5. DUPIXENT [Suspect]
     Active Substance: DUPILUMAB
     Indication: TYPE 2 DIABETES MELLITUS
  6. DUPIXENT [Suspect]
     Active Substance: DUPILUMAB
     Indication: PSORIASIS
     Dosage: 300 MG, QOW
     Route: 058

REACTIONS (1)
  - Product use in unapproved indication [Unknown]
